FAERS Safety Report 6749110-4 (Version None)
Quarter: 2010Q2

REPORT INFORMATION
  Report Type: 
  Country: None (occurrence: None)
  Receive Date: 20100601
  Receipt Date: 20100524
  Transmission Date: 20101027
  Serious: Yes (Death, Other)
  Sender: FDA-Public Use
  Company Number: JP-BAYER-200913155BYL

PATIENT
  Age: 58 Year
  Sex: Male
  Weight: 77 kg

DRUGS (10)
  1. NEXAVAR [Suspect]
     Indication: HEPATIC NEOPLASM MALIGNANT
     Dosage: TOTAL DAILY DOSE: 800 MG  UNIT DOSE: 200 MG
     Route: 048
     Dates: start: 20090811, end: 20090830
  2. UREPEARL [Concomitant]
     Indication: DRY SKIN PROPHYLAXIS
     Route: 061
     Dates: start: 20090810, end: 20090816
  3. CALONAL [Concomitant]
     Route: 048
     Dates: start: 20090812, end: 20090816
  4. PURSENNID [Concomitant]
     Indication: CONSTIPATION
     Route: 048
     Dates: start: 20090812, end: 20090821
  5. SOSEGON [Concomitant]
     Dosage: UNIT DOSE: 15 MG
     Route: 030
     Dates: start: 20090812, end: 20090823
  6. D-SORBITOL [Concomitant]
     Indication: CONSTIPATION PROPHYLAXIS
     Dosage: UNIT DOSE: 30 %
     Route: 048
     Dates: start: 20090812, end: 20090830
  7. KERATINAMIN [Concomitant]
     Indication: DRY SKIN PROPHYLAXIS
     Route: 061
     Dates: start: 20090814, end: 20090830
  8. SODIUM BICARBONATE [Concomitant]
     Indication: METABOLIC ACIDOSIS
     Route: 048
     Dates: start: 20090822, end: 20090830
  9. OXYCONTIN [Concomitant]
     Route: 048
     Dates: start: 20090827, end: 20090830
  10. OXINORM [Concomitant]
     Route: 048
     Dates: start: 20090827, end: 20090830

REACTIONS (10)
  - BLOOD AMYLASE INCREASED [None]
  - BLOOD POTASSIUM INCREASED [None]
  - BLOOD URIC ACID INCREASED [None]
  - DIARRHOEA [None]
  - HEPATIC FUNCTION ABNORMAL [None]
  - HEPATIC NEOPLASM MALIGNANT [None]
  - LIPASE INCREASED [None]
  - METABOLIC ACIDOSIS [None]
  - NAUSEA [None]
  - RASH [None]
